FAERS Safety Report 4654815-5 (Version None)
Quarter: 2005Q2

REPORT INFORMATION
  Report Type: 
  Country: None (occurrence: None)
  Receive Date: 20050505
  Receipt Date: 20050420
  Transmission Date: 20051028
  Serious: Yes (Death)
  Sender: FDA-Public Use
  Company Number: 05-04-0733

PATIENT
  Sex: Male

DRUGS (4)
  1. ALBUTEROL SULFATE [Suspect]
     Dosage: 100MCG Q2HRS INHALATION
     Route: 055
  2. BECLOMETHASONE DIPROPIONATE [Suspect]
     Dosage: 250 MCG BD INHALATION
     Route: 055
  3. ATROVENT [Suspect]
     Dosage: 20MCG 4XQD INHALATION
     Route: 055
  4. THEOPHYLLINE [Suspect]
     Dosage: 300MG BID

REACTIONS (1)
  - DEATH [None]
